FAERS Safety Report 12477021 (Version 1)
Quarter: 2016Q2

REPORT INFORMATION
  Report Type: Spontaneous
  Country: FR (occurrence: FR)
  Receive Date: 20160617
  Receipt Date: 20160617
  Transmission Date: 20160815
  Serious: Yes (Other)
  Sender: FDA-Public Use
  Company Number: FR-PFIZER INC-2016296367

PATIENT
  Sex: Female

DRUGS (5)
  1. MIDAZOLAM [Concomitant]
     Active Substance: MIDAZOLAM\MIDAZOLAM HYDROCHLORIDE
     Indication: COLONOSCOPY
     Dosage: UNK
     Dates: start: 20160202, end: 20160202
  2. PROPOFOL. [Concomitant]
     Active Substance: PROPOFOL
     Indication: COLONOSCOPY
     Dosage: UNK
     Dates: start: 20160202, end: 20160202
  3. KETAMINE [Concomitant]
     Active Substance: KETAMINE
     Indication: COLONOSCOPY
     Dosage: UNK
     Dates: start: 20160202, end: 20160202
  4. ATRACURIUM BESILATE [Suspect]
     Active Substance: ATRACURIUM BESYLATE
     Indication: COLONOSCOPY
     Dosage: UNK
     Route: 042
     Dates: start: 20160202, end: 20160202
  5. PHLOROGLUCINOL [Suspect]
     Active Substance: PHLOROGLUCINOL
     Indication: COLONOSCOPY
     Dosage: UNK
     Route: 042
     Dates: start: 20160202, end: 20160202

REACTIONS (4)
  - Wrong drug administered [Unknown]
  - Oxygen saturation decreased [Unknown]
  - Hypercapnia [Unknown]
  - Medication error [Unknown]

NARRATIVE: CASE EVENT DATE: 20160202
